FAERS Safety Report 8456054-9 (Version None)
Quarter: 2012Q2

REPORT INFORMATION
  Report Type: 
  Country: None (occurrence: None)
  Receive Date: 20120621
  Receipt Date: 20120612
  Transmission Date: 20120825
  Serious: Yes (Other)
  Sender: FDA-Public Use
  Company Number: US-ASTRAZENECA-2012SE39536

PATIENT
  Age: 63 Year
  Sex: Female

DRUGS (2)
  1. NEXIUM [Suspect]
     Route: 048
  2. CRESTOR [Suspect]
     Route: 048

REACTIONS (6)
  - ADVERSE DRUG REACTION [None]
  - UPPER LIMB FRACTURE [None]
  - FALL [None]
  - DYSPNOEA [None]
  - MUSCULAR WEAKNESS [None]
  - ASTHENIA [None]
